FAERS Safety Report 9917530 (Version 1)
Quarter: 2014Q1

REPORT INFORMATION
  Report Type: Report from Study
  Country: CA (occurrence: CA)
  Receive Date: 20140221
  Receipt Date: 20140221
  Transmission Date: 20141002
  Serious: Yes (Hospitalization)
  Sender: FDA-Public Use
  Company Number: CA-JNJFOC-20140211589

PATIENT
  Age: 17 Year
  Sex: Female
  Weight: 59 kg

DRUGS (4)
  1. REMICADE [Suspect]
     Indication: CROHN^S DISEASE
     Route: 042
  2. URSODIOL [Concomitant]
     Route: 065
  3. IMURAN [Concomitant]
     Route: 065
  4. ASACOL [Concomitant]
     Route: 065

REACTIONS (1)
  - Venous thrombosis limb [Not Recovered/Not Resolved]
